FAERS Safety Report 6614095-8 (Version None)
Quarter: 2010Q1

REPORT INFORMATION
  Report Type: 
  Country: None (occurrence: None)
  Receive Date: 20100304
  Receipt Date: 20100223
  Transmission Date: 20100710
  Serious: Yes (Hospitalization)
  Sender: FDA-Public Use
  Company Number: PHHY2010US10809

PATIENT
  Sex: Female

DRUGS (1)
  1. EXJADE [Suspect]
     Dosage: 1750 MG, UNK

REACTIONS (3)
  - CARDIAC FAILURE [None]
  - SICKLE CELL ANAEMIA WITH CRISIS [None]
  - THROMBOSIS [None]
